FAERS Safety Report 7211389-2 (Version None)
Quarter: 2010Q4

REPORT INFORMATION
  Report Type: 
  Country: None (occurrence: None)
  Receive Date: 20101223
  Receipt Date: 20101212
  Transmission Date: 20110411
  Serious: Yes (Hospitalization)
  Sender: FDA-Public Use
  Company Number: 023630

PATIENT
  Sex: Male
  Weight: 76 kg

DRUGS (3)
  1. CIMZIA [Suspect]
     Indication: RHEUMATOID ARTHRITIS
     Dosage: SEE IMAGE: SUBCUTANEOUS
     Route: 058
     Dates: start: 20050815, end: 20060731
  2. CIMZIA [Suspect]
     Indication: RHEUMATOID ARTHRITIS
     Dosage: SEE IMAGE: SUBCUTANEOUS
     Route: 058
     Dates: start: 20060814, end: 20071230
  3. CIMZIA [Suspect]
     Indication: RHEUMATOID ARTHRITIS
     Dosage: SEE IMAGE: SUBCUTANEOUS
     Route: 058
     Dates: end: 20100801

REACTIONS (1)
  - ARTHRITIS INFECTIVE [None]
